FAERS Safety Report 9475655 (Version 1)
Quarter: 2013Q3

REPORT INFORMATION
  Report Type: Spontaneous
  Country: US (occurrence: None)
  Receive Date: 20130822
  Receipt Date: 20130822
  Transmission Date: 20140515
  Serious: Yes (Hospitalization)
  Sender: FDA-Public Use
  Company Number: None

PATIENT
  Age: 54 Year
  Sex: Female
  Weight: 98 kg

DRUGS (7)
  1. 5-FLUOROURACIL (5-FU) [Suspect]
  2. BEVACIZUMAB (RHUMAB VEGF) (704865) [Suspect]
  3. LEUCOVORIN CALCIUM [Suspect]
  4. OXALIPLATIN [Suspect]
  5. GLYBURIDE [Concomitant]
  6. MS CONTIN [Concomitant]
  7. PERCOCET [Concomitant]

REACTIONS (6)
  - Local swelling [None]
  - Swelling face [None]
  - Local swelling [None]
  - Superior vena cava syndrome [None]
  - Device occlusion [None]
  - Venous stenosis [None]
